FAERS Safety Report 9665238 (Version 1)
Quarter: 2013Q4

REPORT INFORMATION
  Report Type: Spontaneous
  Country: US (occurrence: US)
  Receive Date: 20131101
  Receipt Date: 20131101
  Transmission Date: 20140711
  Serious: Yes (Other)
  Sender: FDA-Public Use
  Company Number: CHPA2013US016324

PATIENT
  Age: 51 Year
  Sex: Female

DRUGS (3)
  1. GAS-X ULTRA STRENGTH [Suspect]
     Indication: FLATULENCE
     Dosage: 1-2 DF, PRN
     Route: 048
  2. GAS-X ULTRA STRENGTH [Suspect]
     Indication: ABDOMINAL DISTENSION
  3. GAS-X EXTRA STRENGTH SOFTGELS [Suspect]
     Indication: FLATULENCE
     Dosage: 1-2 DF, PRN
     Route: 048

REACTIONS (1)
  - Upper respiratory tract infection [Recovering/Resolving]
